FAERS Safety Report 7119941-X (Version None)
Quarter: 2010Q4

REPORT INFORMATION
  Report Type: 
  Country: None (occurrence: None)
  Receive Date: 20101123
  Receipt Date: 20101112
  Transmission Date: 20110411
  Serious: Yes (Other)
  Sender: FDA-Public Use
  Company Number: US-PFIZER INC-2010147454

PATIENT
  Sex: Female
  Weight: 117.91 kg

DRUGS (11)
  1. LYRICA [Suspect]
     Indication: MULTIPLE SCLEROSIS
     Dosage: 200 MG, 3X/DAY
     Route: 048
     Dates: start: 20080101
  2. COPAXONE [Concomitant]
     Dosage: 20 MG, 1X/DAY
  3. FLEXERIL [Concomitant]
     Dosage: 10 MG, 1X/DAY
  4. LOSARTAN POTASSIUM [Concomitant]
     Dosage: UNK
  5. FUROSEMIDE [Concomitant]
     Dosage: UNK
  6. NEXIUM [Concomitant]
     Dosage: UNK
  7. BACLOFEN [Concomitant]
     Dosage: UNK
  8. OXYCODONE [Concomitant]
     Dosage: UNK
  9. TERAZOSIN [Concomitant]
     Dosage: UNK
  10. HYDROXYZINE [Concomitant]
     Dosage: UNK
  11. AMBIEN [Concomitant]
     Dosage: UNK

REACTIONS (1)
  - TYPE 2 DIABETES MELLITUS [None]
